FAERS Safety Report 5662900-4 (Version None)
Quarter: 2008Q1

REPORT INFORMATION
  Report Type: 
  Country: None (occurrence: None)
  Receive Date: 20080313
  Receipt Date: 20080304
  Transmission Date: 20080703
  Serious: Yes (Death)
  Sender: FDA-Public Use
  Company Number: JP-JNJFOC-20070803578

PATIENT
  Age: 80 Year
  Sex: Male

DRUGS (22)
  1. FINIBAX [Suspect]
     Route: 041
  2. FINIBAX [Suspect]
     Indication: PNEUMONIA ASPIRATION
     Route: 041
  3. DUROTEP [Suspect]
     Route: 062
  4. DUROTEP [Suspect]
     Indication: DRUG USE FOR UNKNOWN INDICATION
     Route: 062
  5. PREDONINE [Concomitant]
     Route: 048
  6. BLOPRESS [Concomitant]
     Route: 048
  7. LENDORMIN [Concomitant]
     Route: 048
  8. GASMOTIN [Concomitant]
     Route: 048
  9. GASMOTIN [Concomitant]
     Route: 048
  10. TOLEDOMIN [Concomitant]
     Route: 048
  11. GASTER D [Concomitant]
     Route: 048
  12. DEPAS [Concomitant]
     Route: 048
  13. HARNAL D [Concomitant]
     Route: 048
  14. MAGNESIUM OXIDE [Concomitant]
     Route: 048
  15. VOLTAREN [Concomitant]
     Route: 054
  16. PAXIL [Concomitant]
     Route: 048
  17. PAXIL [Concomitant]
     Route: 048
  18. GRAMALIL [Concomitant]
     Route: 048
  19. LENDORMIN D [Concomitant]
     Route: 048
  20. OPSO [Concomitant]
     Route: 048
  21. ATARAX [Concomitant]
     Route: 048
  22. SERENACE [Concomitant]
     Route: 041

REACTIONS (1)
  - RESPIRATORY FAILURE [None]
